FAERS Safety Report 4757557-0 (Version None)
Quarter: 2005Q3

REPORT INFORMATION
  Report Type: 
  Country: None (occurrence: None)
  Receive Date: 20050831
  Receipt Date: 20050822
  Transmission Date: 20060218
  Serious: Yes (Hospitalization)
  Sender: FDA-Public Use
  Company Number: US-MERCK-0508USA03833

PATIENT
  Age: 57 Year
  Sex: Female
  Weight: 58 kg

DRUGS (4)
  1. VIOXX [Suspect]
     Indication: ARTHRITIS
     Route: 048
     Dates: start: 20000101, end: 20020725
  2. PENICILLIN (UNSPECIFIED) [Concomitant]
     Route: 048
  3. TYLENOL [Concomitant]
     Route: 065
  4. IBUPROFEN [Concomitant]
     Route: 048
     Dates: start: 20020701, end: 20050724

REACTIONS (9)
  - ABDOMINAL PAIN [None]
  - ASTHENIA [None]
  - CONSTIPATION [None]
  - GASTRIC ULCER PERFORATION [None]
  - HYPERHIDROSIS [None]
  - LEUKOCYTOSIS [None]
  - MIGRAINE [None]
  - NAUSEA [None]
  - PERITONITIS [None]
